FAERS Safety Report 7538503-3 (Version None)
Quarter: 2011Q2

REPORT INFORMATION
  Report Type: 
  Country: None (occurrence: None)
  Receive Date: 20110610
  Receipt Date: 20110603
  Transmission Date: 20111010
  Serious: Yes (Life-Threatening)
  Sender: FDA-Public Use
  Company Number: GB-BRISTOL-MYERS SQUIBB COMPANY-15653439

PATIENT
  Age: 50 Year
  Sex: Male

DRUGS (10)
  1. CYTARABINE [Interacting]
     Indication: NON-HODGKIN'S LYMPHOMA
  2. DOXORUBICIN HCL [Interacting]
     Indication: NON-HODGKIN'S LYMPHOMA
  3. IFOSFAMIDE [Interacting]
     Indication: NON-HODGKIN'S LYMPHOMA
  4. METHOTREXATE [Interacting]
     Indication: NON-HODGKIN'S LYMPHOMA
  5. ETOPOSIDE [Interacting]
     Indication: NON-HODGKIN'S LYMPHOMA
  6. VINCRISTINE [Interacting]
     Indication: NON-HODGKIN'S LYMPHOMA
  7. CLOZAPINE [Suspect]
     Dosage: TAB
     Route: 048
     Dates: start: 20040915
  8. RITUXIMAB [Suspect]
     Indication: NON-HODGKIN'S LYMPHOMA
  9. CYCLOPHOSPHAMIDE [Interacting]
     Indication: NON-HODGKIN'S LYMPHOMA
  10. MESNA [Concomitant]
     Indication: NON-HODGKIN'S LYMPHOMA

REACTIONS (5)
  - DRUG INTERACTION [None]
  - NON-HODGKIN'S LYMPHOMA [None]
  - NEUTROPENIA [None]
  - AGRANULOCYTOSIS [None]
  - LEUKOPENIA [None]
